FAERS Safety Report 19052324 (Version 1)
Quarter: 2021Q1

REPORT INFORMATION
  Report Type: Spontaneous
  Country: GR (occurrence: GR)
  Receive Date: 20210324
  Receipt Date: 20210324
  Transmission Date: 20210420
  Serious: Yes (Hospitalization)
  Sender: FDA-Public Use
  Company Number: GR-ROCHE-2792194

PATIENT
  Sex: Female
  Weight: 60 kg

DRUGS (45)
  1. LASIX [Suspect]
     Active Substance: FUROSEMIDE
     Indication: NON-HODGKIN^S LYMPHOMA
  2. LOSEC [Suspect]
     Active Substance: OMEPRAZOLE
     Indication: LEUKOPENIA
  3. VEPESID [Suspect]
     Active Substance: ETOPOSIDE
     Indication: NON-HODGKIN^S LYMPHOMA
  4. LASIX [Suspect]
     Active Substance: FUROSEMIDE
     Indication: ANAEMIA
  5. ALDACTONE [Suspect]
     Active Substance: SPIRONOLACTONE
     Indication: ANAEMIA
  6. ALDACTONE [Suspect]
     Active Substance: SPIRONOLACTONE
     Indication: NON-HODGKIN^S LYMPHOMA
  7. VEPESID [Suspect]
     Active Substance: ETOPOSIDE
     Indication: HYPERTENSION
     Route: 065
  8. LOSEC [Suspect]
     Active Substance: OMEPRAZOLE
     Indication: ANAEMIA
     Route: 065
  9. CUBICIN [Suspect]
     Active Substance: DAPTOMYCIN
     Indication: NON-HODGKIN^S LYMPHOMA
  10. VALTREX [Suspect]
     Active Substance: VALACYCLOVIR HYDROCHLORIDE
     Indication: ANAEMIA
  11. VALTREX [Suspect]
     Active Substance: VALACYCLOVIR HYDROCHLORIDE
     Indication: NON-HODGKIN^S LYMPHOMA
  12. LASIX [Suspect]
     Active Substance: FUROSEMIDE
     Indication: DIFFUSE LARGE B-CELL LYMPHOMA
  13. CANCIDAS [Suspect]
     Active Substance: CASPOFUNGIN ACETATE
     Indication: ANAEMIA
  14. VALTREX [Suspect]
     Active Substance: VALACYCLOVIR HYDROCHLORIDE
     Indication: LEUKOPENIA
  15. NORVASC [Suspect]
     Active Substance: AMLODIPINE BESYLATE
     Indication: DIFFUSE LARGE B-CELL LYMPHOMA
  16. VEPESID [Suspect]
     Active Substance: ETOPOSIDE
     Indication: ANAEMIA
  17. MABTHERA [Suspect]
     Active Substance: RITUXIMAB
     Indication: HYPERTENSION
  18. MABTHERA [Suspect]
     Active Substance: RITUXIMAB
     Indication: DIFFUSE LARGE B-CELL LYMPHOMA
  19. LOSEC [Suspect]
     Active Substance: OMEPRAZOLE
     Indication: DIFFUSE LARGE B-CELL LYMPHOMA
  20. LOSEC [Suspect]
     Active Substance: OMEPRAZOLE
     Indication: HYPERTENSION
  21. CUBICIN [Suspect]
     Active Substance: DAPTOMYCIN
     Indication: ANAEMIA
  22. CANCIDAS [Suspect]
     Active Substance: CASPOFUNGIN ACETATE
     Indication: NON-HODGKIN^S LYMPHOMA
  23. VALTREX [Suspect]
     Active Substance: VALACYCLOVIR HYDROCHLORIDE
     Indication: HYPERTENSION
     Route: 065
  24. NORVASC [Suspect]
     Active Substance: AMLODIPINE BESYLATE
     Indication: NON-HODGKIN^S LYMPHOMA
  25. NORVASC [Suspect]
     Active Substance: AMLODIPINE BESYLATE
     Indication: HYPERTENSION
  26. MABTHERA [Suspect]
     Active Substance: RITUXIMAB
     Indication: LEUKOPENIA
     Route: 065
  27. LASIX [Suspect]
     Active Substance: FUROSEMIDE
     Indication: LEUKOPENIA
     Route: 065
  28. LOSEC [Suspect]
     Active Substance: OMEPRAZOLE
     Indication: NON-HODGKIN^S LYMPHOMA
  29. ALDACTONE [Suspect]
     Active Substance: SPIRONOLACTONE
     Indication: LEUKOPENIA
     Route: 065
  30. ALDACTONE [Suspect]
     Active Substance: SPIRONOLACTONE
     Indication: HYPERTENSION
  31. ALDACTONE [Suspect]
     Active Substance: SPIRONOLACTONE
     Indication: DIFFUSE LARGE B-CELL LYMPHOMA
  32. CUBICIN [Suspect]
     Active Substance: DAPTOMYCIN
     Indication: LEUKOPENIA
     Route: 065
  33. CUBICIN [Suspect]
     Active Substance: DAPTOMYCIN
     Indication: DIFFUSE LARGE B-CELL LYMPHOMA
  34. CANCIDAS [Suspect]
     Active Substance: CASPOFUNGIN ACETATE
     Indication: DIFFUSE LARGE B-CELL LYMPHOMA
  35. VALTREX [Suspect]
     Active Substance: VALACYCLOVIR HYDROCHLORIDE
     Indication: DIFFUSE LARGE B-CELL LYMPHOMA
  36. NORVASC [Suspect]
     Active Substance: AMLODIPINE BESYLATE
     Indication: LEUKOPENIA
     Route: 065
  37. VEPESID [Suspect]
     Active Substance: ETOPOSIDE
     Indication: DIFFUSE LARGE B-CELL LYMPHOMA
  38. MABTHERA [Suspect]
     Active Substance: RITUXIMAB
     Indication: NON-HODGKIN^S LYMPHOMA
  39. MABTHERA [Suspect]
     Active Substance: RITUXIMAB
     Indication: ANAEMIA
  40. LASIX [Suspect]
     Active Substance: FUROSEMIDE
     Indication: HYPERTENSION
  41. CUBICIN [Suspect]
     Active Substance: DAPTOMYCIN
     Indication: HYPERTENSION
  42. CANCIDAS [Suspect]
     Active Substance: CASPOFUNGIN ACETATE
     Indication: LEUKOPENIA
     Route: 065
  43. CANCIDAS [Suspect]
     Active Substance: CASPOFUNGIN ACETATE
     Indication: HYPERTENSION
  44. NORVASC [Suspect]
     Active Substance: AMLODIPINE BESYLATE
     Indication: ANAEMIA
  45. VEPESID [Suspect]
     Active Substance: ETOPOSIDE
     Indication: LEUKOPENIA

REACTIONS (2)
  - Neoplasm progression [Unknown]
  - Off label use [Unknown]
